FAERS Safety Report 9201328 (Version 1)
Quarter: 2013Q2

REPORT INFORMATION
  Report Type: Spontaneous
  Country: US (occurrence: US)
  Receive Date: 20130401
  Receipt Date: 20130401
  Transmission Date: 20140414
  Serious: Yes (Other)
  Sender: FDA-Public Use
  Company Number: US-ENDO PHARMACEUTICALS INC.-LACT20130004

PATIENT
  Sex: Female

DRUGS (2)
  1. LACTULOSE [Suspect]
     Indication: PRODUCT USED FOR UNKNOWN INDICATION
     Route: 048
  2. NOVOLOG [Suspect]
     Indication: BLOOD GLUCOSE INCREASED
     Dosage: UNKNOWN
     Route: 065

REACTIONS (3)
  - Fall [Recovered/Resolved]
  - Blood glucose fluctuation [Not Recovered/Not Resolved]
  - Incorrect storage of drug [None]
